FAERS Safety Report 4326442-0 (Version None)
Quarter: 2004Q1

REPORT INFORMATION
  Report Type: 
  Country: None (occurrence: None)
  Receive Date: 20040323
  Receipt Date: 20040205
  Transmission Date: 20041129
  Serious: Yes (Hospitalization, Other)
  Sender: FDA-Public Use
  Company Number: US_0402100417

PATIENT
  Age: 66 Year
  Sex: Male

DRUGS (5)
  1. CIALIS [Suspect]
     Indication: ERECTILE DYSFUNCTION
     Dosage: 20 MG/DAY
     Dates: start: 20031231, end: 20031231
  2. LISINOPRIL [Concomitant]
  3. GLYBURIDE [Concomitant]
  4. CALCIUM [Concomitant]
  5. IRON SUPPLEMENT [Concomitant]

REACTIONS (3)
  - ABDOMINAL PAIN UPPER [None]
  - DYSPEPSIA [None]
  - MYOCARDIAL INFARCTION [None]
